FAERS Safety Report 9337895 (Version 3)
Quarter: 2013Q3

REPORT INFORMATION
  Report Type: Spontaneous
  Country: US (occurrence: US)
  Receive Date: 20130608
  Receipt Date: 20130708
  Transmission Date: 20140515
  Serious: Yes (Hospitalization)
  Sender: FDA-Public Use
  Company Number: US-009507513-1306USA001799

PATIENT
  Age: 50 Year
  Sex: Female

DRUGS (3)
  1. PEGINTRON [Suspect]
     Indication: HEPATITIS C
     Dosage: 150 MICROGRAM, QW
     Dates: start: 20130506, end: 20130530
  2. RIBAVIRIN [Suspect]
     Indication: HEPATITIS C
     Dosage: 3 TABLETS IN THE MORNING AND 3 TABLETS AT NIGHT
     Route: 048
     Dates: end: 201305
  3. PEGASYS [Suspect]
     Indication: HEPATITIS C
     Dosage: 180 MICROGRAM, QD
     Dates: start: 2013

REACTIONS (9)
  - Vomiting [Unknown]
  - Nausea [Unknown]
  - Dehydration [Unknown]
  - Pain [Unknown]
  - Drug intolerance [Unknown]
  - Anaemia [Unknown]
  - Transfusion [Unknown]
  - Circumstance or information capable of leading to medication error [Unknown]
  - Pyrexia [Unknown]
